FAERS Safety Report 7152868-6 (Version None)
Quarter: 2010Q4

REPORT INFORMATION
  Report Type: 
  Country: None (occurrence: None)
  Receive Date: 20101213
  Receipt Date: 20101208
  Transmission Date: 20110411
  Serious: Yes (Death)
  Sender: FDA-Public Use
  Company Number: PHHY2009US66599

PATIENT
  Sex: Female

DRUGS (1)
  1. EXJADE [Suspect]
     Dosage: 1250 MG, QD
     Route: 048

REACTIONS (5)
  - ABDOMINAL PAIN [None]
  - DEATH [None]
  - FAECES DISCOLOURED [None]
  - HEADACHE [None]
  - SERUM FERRITIN INCREASED [None]
